FAERS Safety Report 18610778 (Version 2)
Quarter: 2021Q1

REPORT INFORMATION
  Report Type: Not Available
  Country: DE (occurrence: DE)
  Receive Date: 20201214
  Receipt Date: 20210112
  Transmission Date: 20210419
  Serious: Yes (Hospitalization, Other)
  Sender: FDA-Public Use
  Company Number: DE-SYNTHON BV-IN51PV20_56585

PATIENT
  Age: 76 Year
  Sex: Male
  Weight: 87 kg

DRUGS (7)
  1. BISOPROLOL [Suspect]
     Active Substance: BISOPROLOL
     Indication: PRODUCT USED FOR UNKNOWN INDICATION
     Dosage: 5 MILLIGRAM
     Route: 065
  2. SPIRONOLACTONE. [Suspect]
     Active Substance: SPIRONOLACTONE
     Indication: PRODUCT USED FOR UNKNOWN INDICATION
     Dosage: 1 DOSAGE FORM, QD (1?0?0) 25 UNSPECIFIED UNIT, 1 DAY
     Route: 065
  3. METFORMIN [Suspect]
     Active Substance: METFORMIN HYDROCHLORIDE
     Indication: PRODUCT USED FOR UNKNOWN INDICATION
     Dosage: 500 MILLIGRAM
     Route: 065
     Dates: start: 2009, end: 2016
  4. TOREM [TORASEMIDE] [Suspect]
     Active Substance: TORSEMIDE
     Indication: PRODUCT USED FOR UNKNOWN INDICATION
     Dosage: 1 DOSAGE FORM, QD, 1?0?0, 20 UNSPECIFIED UNIT, 1 DAY
     Route: 065
  5. ACETYLSALICYLIC ACID [Suspect]
     Active Substance: ASPIRIN
     Indication: PRODUCT USED FOR UNKNOWN INDICATION
     Dosage: 1 DOSAGE FORM, QD, 1?0?0, 100 UNSPECIFIED UNIT, 1 DAY
     Route: 065
  6. TAMSULOSIN [Suspect]
     Active Substance: TAMSULOSIN
     Indication: PRODUCT USED FOR UNKNOWN INDICATION
     Dosage: 1 DAY, QD, 1?0?0
     Route: 065
  7. SIMVA [Suspect]
     Active Substance: SIMVASTATIN
     Indication: PRODUCT USED FOR UNKNOWN INDICATION
     Dosage: 1 DOSAGE FORM, QD, 0?0?1, 40 UNSPECIFIED UNIT, 1 DAY
     Route: 065

REACTIONS (21)
  - Ischaemic cardiomyopathy [Recovering/Resolving]
  - Pleural effusion [Recovering/Resolving]
  - N-terminal prohormone brain natriuretic peptide increased [Recovering/Resolving]
  - Drug ineffective [Unknown]
  - Body temperature increased [Recovered/Resolved]
  - Cardiac failure [Recovering/Resolving]
  - Weight increased [Not Recovered/Not Resolved]
  - Pulmonary oedema [Recovering/Resolving]
  - Duodenal ulcer [Unknown]
  - Ejection fraction decreased [Recovering/Resolving]
  - Weight decreased [Recovered/Resolved]
  - Drug interaction [Unknown]
  - Umbilical hernia [Unknown]
  - Weight increased [Recovered/Resolved]
  - Dyspnoea exertional [Recovering/Resolving]
  - Gastrointestinal angiectasia [Unknown]
  - Coronary artery disease [Unknown]
  - Helicobacter test positive [Unknown]
  - Fluid retention [Recovering/Resolving]
  - C-reactive protein increased [Recovered/Resolved]
  - Oedema peripheral [Recovering/Resolving]

NARRATIVE: CASE EVENT DATE: 2016
